FAERS Safety Report 5074380-0 (Version None)
Quarter: 2006Q3

REPORT INFORMATION
  Report Type: 
  Country: None (occurrence: None)
  Receive Date: 20060803
  Receipt Date: 20060721
  Transmission Date: 20061208
  Serious: Yes (Hospitalization)
  Sender: FDA-Public Use
  Company Number: 2006-01896

PATIENT
  Age: 73 Year
  Sex: Female
  Weight: 62 kg

DRUGS (25)
  1. VELCADE [Suspect]
     Indication: MULTIPLE MYELOMA
     Dosage: 1.5 MG, INTRAVENOUS
     Route: 042
     Dates: start: 20060217, end: 20060227
  2. VELCADE [Suspect]
     Indication: MULTIPLE MYELOMA
     Dosage: 1.5 MG, INTRAVENOUS
     Route: 042
     Dates: start: 20060104
  3. DEXAMETHASONE [Suspect]
     Indication: MULTIPLE MYELOMA
     Dosage: 40.00 MG ORAL
     Route: 048
     Dates: start: 20060217, end: 20060220
  4. DEXAMETHASONE [Suspect]
     Indication: MULTIPLE MYELOMA
     Dosage: 40.00 MG ORAL
     Route: 048
     Dates: start: 20060104
  5. THALIDOMIDE (THALIDOMIDE) TABLET [Suspect]
     Indication: MULTIPLE MYELOMA
     Dosage: 200.00 MG ORAL
     Route: 048
     Dates: start: 20060217, end: 20060220
  6. THALIDOMIDE (THALIDOMIDE) TABLET [Suspect]
     Indication: MULTIPLE MYELOMA
     Dosage: 200.00 MG ORAL
     Route: 048
     Dates: start: 20060104
  7. CISPLATIN [Suspect]
     Indication: MULTIPLE MYELOMA
     Dosage: 15.00 MG INTRAVENOUS
     Route: 042
     Dates: start: 20060217, end: 20060220
  8. CISPLATIN [Suspect]
     Indication: MULTIPLE MYELOMA
     Dosage: 15.00 MG INTRAVENOUS
     Route: 042
     Dates: start: 20060104
  9. DOXORUBICIN HCL [Suspect]
     Indication: MULTIPLE MYELOMA
     Dosage: 15.00 MG INTRAVENOUS
     Route: 042
     Dates: start: 20060217, end: 20060220
  10. DOXORUBICIN HCL [Suspect]
     Indication: MULTIPLE MYELOMA
     Dosage: 15.00 MG INTRAVENOUS
     Route: 042
     Dates: start: 20060104
  11. CYCLOPHOSPHAMIDE [Suspect]
     Indication: MULTIPLE MYELOMA
     Dosage: 612.00 INTRAVENOUS
     Route: 042
     Dates: start: 20060217, end: 20060220
  12. CYCLOPHOSPHAMIDE [Suspect]
     Indication: MULTIPLE MYELOMA
     Dosage: 612.00 INTRAVENOUS
     Route: 042
     Dates: start: 20060104
  13. ETOPOSIDE [Suspect]
     Indication: MULTIPLE MYELOMA
     Dosage: 61.00 MG INTRAVENOUS
     Route: 042
     Dates: start: 20060217, end: 20060220
  14. ETOPOSIDE [Suspect]
     Indication: MULTIPLE MYELOMA
     Dosage: 61.00 MG INTRAVENOUS
     Route: 042
     Dates: start: 20060104
  15. SYNTHROID [Concomitant]
  16. LORTAB [Concomitant]
  17. RESTORIL [Concomitant]
  18. DITROPAN [Concomitant]
  19. LOVENOX [Concomitant]
  20. ESCITALOPRAM [Concomitant]
  21. LORAZEPAM [Concomitant]
  22. ACYCLOVIR [Concomitant]
  23. METOPROLOL TARTRATE [Concomitant]
  24. LEVAQUIN [Concomitant]
  25. MIRALAX [Concomitant]

REACTIONS (1)
  - CHEST PAIN [None]
